FAERS Safety Report 4673486-5 (Version None)
Quarter: 2005Q2

REPORT INFORMATION
  Report Type: 
  Country: None (occurrence: None)
  Receive Date: 20050525
  Receipt Date: 20050510
  Transmission Date: 20051028
  Serious: Yes (Hospitalization)
  Sender: FDA-Public Use
  Company Number: US-GLAXOSMITHKLINE-A0557932A

PATIENT
  Age: 50 Year
  Sex: Female
  Weight: 59 kg

DRUGS (2)
  1. NICORETTE [Suspect]
     Route: 002
     Dates: start: 19890101
  2. NICODERM 21MG (RX) [Suspect]
     Route: 062
     Dates: start: 19950101, end: 19950101

REACTIONS (8)
  - ANGER [None]
  - BLADDER CANCER [None]
  - COLON CANCER [None]
  - DRUG INEFFECTIVE [None]
  - DRUG WITHDRAWAL SYNDROME [None]
  - INTENTIONAL MISUSE [None]
  - NAUSEA [None]
  - NICOTINE DEPENDENCE [None]
